FAERS Safety Report 24979040 (Version 1)
Quarter: 2025Q1

REPORT INFORMATION
  Report Type: Spontaneous
  Country: JP (occurrence: JP)
  Receive Date: 20250218
  Receipt Date: 20250218
  Transmission Date: 20250409
  Serious: Yes (Other)
  Sender: ALEXION PHARMACEUTICALS
  Company Number: JP-ASTRAZENECA-220005236_020520_P_1

PATIENT

DRUGS (1)
  1. NEXIUM [Suspect]
     Active Substance: ESOMEPRAZOLE MAGNESIUM
     Indication: Gastrooesophageal reflux disease

REACTIONS (19)
  - Pancytopenia [Unknown]
  - Back pain [Unknown]
  - Peripheral coldness [Unknown]
  - Fatigue [Unknown]
  - Feeling abnormal [Unknown]
  - Gastric polyps [Unknown]
  - Haemorrhage subcutaneous [Unknown]
  - Dyspepsia [Unknown]
  - Secretion gastric absent [Unknown]
  - Skin discolouration [Unknown]
  - Tinnitus [Unknown]
  - Visual acuity reduced [Unknown]
  - Decreased appetite [Unknown]
  - Chromaturia [Unknown]
  - Deficiency of bile secretion [Unknown]
  - Hepatic function abnormal [Unknown]
  - Faeces soft [Unknown]
  - Diarrhoea [Unknown]
  - Nausea [Unknown]
